FAERS Safety Report 20201810 (Version 2)
Quarter: 2022Q1

REPORT INFORMATION
  Report Type: Spontaneous
  Country: US (occurrence: US)
  Receive Date: 20211217
  Receipt Date: 20220211
  Transmission Date: 20220423
  Serious: No
  Sender: FDA-Public Use
  Company Number: US-PFIZER INC-202101631609

PATIENT
  Age: 67 Year

DRUGS (1)
  1. TOVIAZ [Suspect]
     Active Substance: FESOTERODINE FUMARATE
     Dosage: UNK

REACTIONS (4)
  - Therapeutic product effect incomplete [Unknown]
  - Product supply issue [Unknown]
  - Product dose omission issue [Unknown]
  - Asthenia [Unknown]
